FAERS Safety Report 11801304 (Version 1)
Quarter: 2015Q4

REPORT INFORMATION
  Report Type: Spontaneous
  Country: IT (occurrence: IT)
  Receive Date: 20151204
  Receipt Date: 20151204
  Transmission Date: 20160305
  Serious: Yes (Other)
  Sender: FDA-Public Use
  Company Number: IT-SUN PHARMACEUTICAL INDUSTRIES LTD-2015R1-107125

PATIENT
  Sex: Female

DRUGS (2)
  1. METHYLPHENIDATE. [Suspect]
     Active Substance: METHYLPHENIDATE
     Indication: PSYCHOMOTOR HYPERACTIVITY
     Dosage: 6TH DAY: IMMEDIATE RELEASE TWICE DAILY (8:00 A.M AND 2:00 P.M)
     Route: 065
  2. METHYLPHENIDATE. [Suspect]
     Active Substance: METHYLPHENIDATE
     Indication: PSYCHOMOTOR HYPERACTIVITY
     Dosage: 5 MG 5TH DAY: IMMEDIATE RELEASE (AT 9:00 A.M)
     Route: 065

REACTIONS (1)
  - Sleep disorder due to general medical condition, parasomnia type [Recovered/Resolved]
